FAERS Safety Report 11934808 (Version 1)
Quarter: 2016Q1

REPORT INFORMATION
  Report Type: Spontaneous
  Country: US (occurrence: None)
  Receive Date: 20160120
  Receipt Date: 20160120
  Transmission Date: 20160526
  Serious: Yes (Disabling)
  Sender: FDA-Public Use
  Company Number: None

PATIENT
  Age: 55 Year
  Sex: Female
  Weight: 88.45 kg

DRUGS (6)
  1. ALEVE [Concomitant]
     Active Substance: NAPROXEN SODIUM
  2. BISOPROLOL HCTZ [Concomitant]
  3. ZIAC [Concomitant]
     Active Substance: BISOPROLOL FUMARATE\HYDROCHLOROTHIAZIDE
  4. IBUPROFEN. [Concomitant]
     Active Substance: IBUPROFEN
  5. DULOXETINE HCL DR 30 MG LUPIN PHARMA [Suspect]
     Active Substance: DULOXETINE HYDROCHLORIDE
     Indication: FIBROMYALGIA
     Dosage: 1 PILL
     Route: 048
     Dates: start: 20140306, end: 20140326
  6. RELPEX [Concomitant]

REACTIONS (3)
  - Drug ineffective [None]
  - Product substitution issue [None]
  - Fatigue [None]

NARRATIVE: CASE EVENT DATE: 20140306
